FAERS Safety Report 22907080 (Version 3)
Quarter: 2023Q4

REPORT INFORMATION
  Report Type: Report from Study
  Country: NL (occurrence: NL)
  Receive Date: 20230905
  Receipt Date: 20231011
  Transmission Date: 20240109
  Serious: Yes (Other)
  Sender: FDA-Public Use
  Company Number: NL-ABBVIE-5379421

PATIENT
  Sex: Female

DRUGS (9)
  1. REMICADE [Suspect]
     Active Substance: INFLIXIMAB
     Indication: Crohn^s disease
     Route: 042
  2. MERCAPTOPURINE [Suspect]
     Active Substance: MERCAPTOPURINE
     Indication: Crohn^s disease
     Dosage: 6-MERCAPTOPURINE
     Route: 065
  3. ADALIMUMAB [Suspect]
     Active Substance: ADALIMUMAB
     Indication: Crohn^s disease
     Route: 058
  4. PREDNISONE [Concomitant]
     Active Substance: PREDNISONE
     Indication: Crohn^s disease
     Route: 065
  5. USTEKINUMAB [Concomitant]
     Active Substance: USTEKINUMAB
     Indication: Crohn^s disease
  6. CERTOLIZUMAB [Concomitant]
     Active Substance: CERTOLIZUMAB
     Indication: Crohn^s disease
     Dates: end: 202303
  7. GOLIMUMAB [Concomitant]
     Active Substance: GOLIMUMAB
     Indication: Crohn^s disease
  8. METHOTREXATE [Concomitant]
     Active Substance: METHOTREXATE
     Indication: Crohn^s disease
  9. VEDOLIZUMAB [Concomitant]
     Active Substance: VEDOLIZUMAB
     Indication: Crohn^s disease

REACTIONS (11)
  - Crohn^s disease [Unknown]
  - Colectomy [Unknown]
  - Ileocaecal resection [Unknown]
  - Intestinal anastomosis [Unknown]
  - Ileostomy [Unknown]
  - Post procedural complication [Unknown]
  - Erythema nodosum [Unknown]
  - Neuralgia [Unknown]
  - Infusion related reaction [Unknown]
  - Therapeutic product effect decreased [Unknown]
  - Off label use [Unknown]
